FAERS Safety Report 7182949-2 (Version None)
Quarter: 2010Q4

REPORT INFORMATION
  Report Type: 
  Country: None (occurrence: None)
  Receive Date: 20101209
  Receipt Date: 20101123
  Transmission Date: 20110411
  Serious: Yes (Other)
  Sender: FDA-Public Use
  Company Number: FKO201000523

PATIENT
  Age: 47 Year
  Sex: Female

DRUGS (3)
  1. CISPLATIN [Suspect]
     Indication: NASOPHARYNGEAL CANCER
  2. FLUOROURACIL [Suspect]
     Indication: NASOPHARYNGEAL CANCER
  3. CARBAMAZEPINE [Concomitant]

REACTIONS (3)
  - DIPLOPIA [None]
  - HYPOAESTHESIA FACIAL [None]
  - VITH NERVE DISORDER [None]
